FAERS Safety Report 17433221 (Version 1)
Quarter: 2020Q1

REPORT INFORMATION
  Report Type: Spontaneous
  Country: FR (occurrence: FR)
  Receive Date: 20200219
  Receipt Date: 20200219
  Transmission Date: 20200409
  Serious: Yes (Other)
  Sender: FDA-Public Use
  Company Number: FR-BAXTER-2020BAX003312

PATIENT
  Age: 20 Year
  Sex: Male
  Weight: 78.6 kg

DRUGS (5)
  1. ENDOXAN 1000 MG, POUDRE POUR SOLUTIONINJECTABLE [Suspect]
     Active Substance: CYCLOPHOSPHAMIDE
     Indication: T-CELL TYPE ACUTE LEUKAEMIA
     Dosage: 390 MG, THEN 2X780 MG
     Route: 041
     Dates: start: 20191228, end: 20191230
  2. METHOTREXATE MYLAN [Suspect]
     Active Substance: METHOTREXATE SODIUM
     Indication: T-CELL TYPE ACUTE LEUKAEMIA
     Dosage: 195 MG, THEN 1750MG
     Route: 041
     Dates: start: 20191227, end: 20191228
  3. CYTARABINE SANDOZ [Suspect]
     Active Substance: CYTARABINE
     Indication: T-CELL TYPE ACUTE LEUKAEMIA
     Route: 041
     Dates: start: 20191231, end: 20200101
  4. VINCRISTINE HOSPIRA [Suspect]
     Active Substance: VINCRISTINE
     Indication: T-CELL TYPE ACUTE LEUKAEMIA
     Dosage: 2 MG ON 26/12/2019 AND 01/01/2020
     Route: 041
     Dates: start: 20191226, end: 20200101
  5. ATRIANCE [Suspect]
     Active Substance: NELARABINE
     Indication: T-CELL TYPE ACUTE LEUKAEMIA
     Route: 041
     Dates: start: 20191227, end: 20191231

REACTIONS (2)
  - Muscular weakness [Recovering/Resolving]
  - Dysaesthesia [Recovering/Resolving]

NARRATIVE: CASE EVENT DATE: 20200108
